FAERS Safety Report 22353969 (Version 1)
Quarter: 2023Q2

REPORT INFORMATION
  Report Type: Spontaneous
  Country: US (occurrence: US)
  Receive Date: 20230523
  Receipt Date: 20230523
  Transmission Date: 20230721
  Serious: Yes (Hospitalization)
  Sender: FDA-Public Use
  Company Number: US-STERISCIENCE B.V.-2022-ST-000204

PATIENT
  Age: 88 Year
  Sex: Female

DRUGS (1)
  1. NAFCILLIN [Suspect]
     Active Substance: NAFCILLIN SODIUM
     Indication: Staphylococcal bacteraemia
     Dosage: UNK
     Route: 065

REACTIONS (1)
  - Tubulointerstitial nephritis [None]
